FAERS Safety Report 11824020 (Version 1)
Quarter: 2015Q4

REPORT INFORMATION
  Report Type: Spontaneous
  Country: US (occurrence: US)
  Receive Date: 20151210
  Receipt Date: 20151210
  Transmission Date: 20160305
  Serious: No
  Sender: FDA-Public Use
  Company Number: US-LPDUSPRD-20150679

PATIENT
  Age: 87 Year
  Sex: Female

DRUGS (1)
  1. VENOFER [Suspect]
     Active Substance: IRON SUCROSE
     Dosage: 400MG IN 250ML NS ONCE/WK (X2)
     Route: 041
     Dates: start: 20150828, end: 20150904

REACTIONS (4)
  - Off label use [Unknown]
  - Extravasation [Recovered/Resolved]
  - Contusion [Recovered/Resolved]
  - Dehydration [Unknown]

NARRATIVE: CASE EVENT DATE: 20150828
